FAERS Safety Report 6816216-0 (Version None)
Quarter: 2010Q3

REPORT INFORMATION
  Report Type: 
  Country: None (occurrence: None)
  Receive Date: 20100705
  Receipt Date: 20090927
  Transmission Date: 20110219
  Serious: No
  Sender: FDA-Public Use
  Company Number: US-PFIZER INC-2004239820US

PATIENT
  Sex: Male

DRUGS (3)
  1. XANAX XR [Suspect]
     Dosage: 0.5 MG, 1X/DAY
     Dates: start: 20031101
  2. ALPRAZOLAM [Suspect]
     Dosage: 0.5 MG, UNK
  3. ALPRAZOLAM [Suspect]
     Dosage: UNK

REACTIONS (20)
  - ABDOMINAL DISTENSION [None]
  - ABDOMINAL PAIN UPPER [None]
  - COAGULOPATHY [None]
  - COLD SWEAT [None]
  - CONSTIPATION [None]
  - DEHYDRATION [None]
  - DISCOMFORT [None]
  - DRUG EFFECT DECREASED [None]
  - DRUG EFFECT INCREASED [None]
  - DRY EYE [None]
  - HYPERSENSITIVITY [None]
  - IRRITABILITY [None]
  - MUCOUS MEMBRANE DISORDER [None]
  - NEUROPATHY PERIPHERAL [None]
  - PAIN [None]
  - PRESYNCOPE [None]
  - PRODUCT QUALITY ISSUE [None]
  - SOMNOLENCE [None]
  - SWEAT GLAND DISORDER [None]
  - TREMOR [None]
